FAERS Safety Report 4537314-0 (Version None)
Quarter: 2004Q4

REPORT INFORMATION
  Report Type: 
  Country: None (occurrence: None)
  Receive Date: 20041221
  Receipt Date: 20041118
  Transmission Date: 20050328
  Serious: Yes (Death)
  Sender: FDA-Public Use
  Company Number: MK200412-0195-1

PATIENT
  Age: 79 Year

DRUGS (2)
  1. OXYCODONE AND ACETAMINOPHEN [Suspect]
     Dates: end: 20030101
  2. ACETAMINOPHEN (STRENGTH UNK) [Suspect]
     Dates: end: 20040101

REACTIONS (2)
  - MEDICATION ERROR [None]
  - MULTIPLE DRUG OVERDOSE ACCIDENTAL [None]
